FAERS Safety Report 6359168-2 (Version None)
Quarter: 2009Q3

REPORT INFORMATION
  Report Type: 
  Country: None (occurrence: None)
  Receive Date: 20090917
  Receipt Date: 20090910
  Transmission Date: 20100115
  Serious: Yes (Other)
  Sender: FDA-Public Use
  Company Number: US-JNJFOC-20070800682

PATIENT
  Sex: Female
  Weight: 63.5 kg

DRUGS (3)
  1. ELMIRON [Suspect]
     Indication: CYSTITIS INTERSTITIAL
     Route: 048
  2. ULTRAM [Concomitant]
     Indication: BACK PAIN
     Dosage: AT BEDTIME
     Route: 065
  3. ATARAX [Concomitant]
     Indication: CYSTITIS INTERSTITIAL
     Dosage: AT BEDTIME
     Route: 065

REACTIONS (5)
  - ALOPECIA [None]
  - BLOOD DISORDER [None]
  - DIARRHOEA [None]
  - EPISTAXIS [None]
  - WEIGHT DECREASED [None]
